FAERS Safety Report 13314166 (Version 1)
Quarter: 2017Q1

REPORT INFORMATION
  Report Type: Spontaneous
  Country: FR (occurrence: FR)
  Receive Date: 20170309
  Receipt Date: 20170309
  Transmission Date: 20170428
  Serious: Yes (Other)
  Sender: FDA-Public Use
  Company Number: FR-BAYER-2017-023948

PATIENT
  Age: 64 Year
  Sex: Female

DRUGS (2)
  1. STIVARGA [Suspect]
     Active Substance: REGORAFENIB
     Indication: COLORECTAL CANCER STAGE IV
     Dosage: 160 MG, QD EVERY 3 CONSECUTIVES WEEKS ON 4 WEEKS
     Dates: start: 2013
  2. IRINOTECAN [Concomitant]
     Active Substance: IRINOTECAN
     Dosage: 350 MG/M2, UNK

REACTIONS (7)
  - Hypertension [None]
  - Mucosal inflammation [None]
  - Colorectal cancer stage IV [None]
  - Abdominal pain [None]
  - Myalgia [None]
  - Asthenia [None]
  - Metastases to lung [None]

NARRATIVE: CASE EVENT DATE: 2013
